FAERS Safety Report 7770610-2 (Version None)
Quarter: 2011Q3

REPORT INFORMATION
  Report Type: 
  Country: None (occurrence: None)
  Receive Date: 20110922
  Receipt Date: 20110909
  Transmission Date: 20111222
  Serious: Yes (Other)
  Sender: FDA-Public Use
  Company Number: PHFR2010IE01690

PATIENT
  Sex: Male

DRUGS (3)
  1. CLOZAPINE [Suspect]
     Route: 048
     Dates: start: 20050919
  2. CHEMOTHERAPEUTICS NOS [Concomitant]
  3. EFFEXOR [Concomitant]
     Indication: DEPRESSION
     Dosage: 150 MG, QD
     Route: 048

REACTIONS (3)
  - SEPSIS [None]
  - WHITE BLOOD CELL COUNT INCREASED [None]
  - NEUTROPHIL COUNT INCREASED [None]
